FAERS Safety Report 17388846 (Version 2)
Quarter: 2020Q2

REPORT INFORMATION
  Report Type: Spontaneous
  Country: US (occurrence: US)
  Receive Date: 20200207
  Receipt Date: 20200622
  Transmission Date: 20200713
  Serious: No
  Sender: FDA-Public Use
  Company Number: US-PFIZER INC-2020051225

PATIENT
  Age: 75 Year
  Sex: Female
  Weight: 89.8 kg

DRUGS (2)
  1. MESALAMINE. [Concomitant]
     Active Substance: MESALAMINE
     Dosage: 1.5 G, 1X/DAY (EXTENDED RELEASE 4 CAPS EVERY MORNING)
     Dates: start: 2018
  2. XELJANZ [Suspect]
     Active Substance: TOFACITINIB CITRATE
     Indication: COLITIS ULCERATIVE
     Dosage: 5 MG, 2X/DAY
     Dates: start: 20200121

REACTIONS (1)
  - Thinking abnormal [Recovered/Resolved]
